FAERS Safety Report 7641907-1 (Version None)
Quarter: 2011Q3

REPORT INFORMATION
  Report Type: 
  Country: None (occurrence: None)
  Receive Date: 20110722
  Receipt Date: 20110714
  Transmission Date: 20111222
  Serious: No
  Sender: FDA-Public Use
  Company Number: 2011-01048

PATIENT
  Sex: Female

DRUGS (1)
  1. ALL ZICAM PRODUCTS [Suspect]

REACTIONS (2)
  - DYSGEUSIA [None]
  - ANOSMIA [None]
